FAERS Safety Report 10746486 (Version 1)
Quarter: 2015Q1

REPORT INFORMATION
  Report Type: Spontaneous
  Country: BR (occurrence: BR)
  Receive Date: 20150128
  Receipt Date: 20150128
  Transmission Date: 20150721
  Serious: Yes (Death, Life-Threatening, Hospitalization, Other)
  Sender: FDA-Public Use
  Company Number: PHHY2015BR009841

PATIENT
  Age: 69 Year
  Sex: Male

DRUGS (4)
  1. DIOVAN AMLO FIX [Suspect]
     Active Substance: AMLODIPINE\VALSARTAN
     Indication: HYPERTENSION
     Dosage: 1 DF (160/10 MG), QD (DAILY)
     Route: 048
  2. DIOVAN [Suspect]
     Active Substance: VALSARTAN
     Indication: HYPERTENSION
     Dosage: 1 DF (160 MG), QD (DAILY)
     Route: 048
     Dates: start: 20141218
  3. DIOVAN [Suspect]
     Active Substance: VALSARTAN
     Indication: CARDIOMEGALY
  4. DIOVAN AMLO FIX [Suspect]
     Active Substance: AMLODIPINE\VALSARTAN
     Indication: CARDIOMEGALY

REACTIONS (6)
  - Respiratory failure [Not Recovered/Not Resolved]
  - Respiratory arrest [Unknown]
  - Renal failure [Unknown]
  - Blister [Unknown]
  - Product use issue [Unknown]
  - Sepsis [Fatal]

NARRATIVE: CASE EVENT DATE: 20141218
